FAERS Safety Report 19638448 (Version 5)
Quarter: 2022Q1

REPORT INFORMATION
  Report Type: Report from Study
  Country: US (occurrence: US)
  Receive Date: 20210729
  Receipt Date: 20220324
  Transmission Date: 20220423
  Serious: Yes (Life-Threatening, Hospitalization, Other)
  Sender: FDA-Public Use
  Company Number: US-GILEAD-2021-0526296

PATIENT
  Age: 49 Year
  Sex: Female

DRUGS (42)
  1. REMDESIVIR [Suspect]
     Active Substance: REMDESIVIR
     Indication: COVID-19
     Dosage: UNK UNK, QD
     Route: 042
     Dates: start: 20210317, end: 20210320
  2. CENICRIVIROC [Suspect]
     Active Substance: CENICRIVIROC
     Indication: COVID-19
     Dosage: UNK UNK, BID
     Route: 048
     Dates: start: 20210317, end: 20210414
  3. PLACEBO [Suspect]
     Active Substance: UNSPECIFIED INGREDIENT
     Indication: COVID-19
     Dosage: UNK UNK, BID
     Route: 048
     Dates: start: 20210317, end: 20210414
  4. AMLODIPINE [Concomitant]
     Active Substance: AMLODIPINE BESYLATE
  5. ATORVASTATIN CALCIUM [Concomitant]
     Active Substance: ATORVASTATIN CALCIUM
  6. FLUTICASONE PROPIONATE\SALMETEROL XINAFOATE [Concomitant]
     Active Substance: FLUTICASONE PROPIONATE\SALMETEROL XINAFOATE
  7. HYDROCHLOROTHIAZIDE [Concomitant]
     Active Substance: HYDROCHLOROTHIAZIDE
  8. LIRAGLUTIDE [Concomitant]
     Active Substance: LIRAGLUTIDE
  9. LOPERAMIDE HYDROCHLORIDE [Concomitant]
     Active Substance: LOPERAMIDE HYDROCHLORIDE
  10. MONTELUKAST [Concomitant]
     Active Substance: MONTELUKAST SODIUM
  11. ALBUTEROL SULFATE [Concomitant]
     Active Substance: ALBUTEROL SULFATE
  12. SUMATRIPTAN [Concomitant]
     Active Substance: SUMATRIPTAN
  13. BENZONATATE [Concomitant]
     Active Substance: BENZONATATE
  14. BUDESONIDE\FORMOTEROL FUMARATE [Concomitant]
     Active Substance: BUDESONIDE\FORMOTEROL FUMARATE
  15. DEXAMETHASONE [Concomitant]
     Active Substance: DEXAMETHASONE
  16. ENOXAPARIN [Concomitant]
     Active Substance: ENOXAPARIN
  17. FENTANYL [Concomitant]
     Active Substance: FENTANYL
  18. FLUTICASONE [Concomitant]
     Active Substance: FLUTICASONE
  19. FLUTICASONE PROPIONATE\SALMETEROL XINAFOATE [Concomitant]
     Active Substance: FLUTICASONE PROPIONATE\SALMETEROL XINAFOATE
  20. FUROSEMIDE [Concomitant]
     Active Substance: FUROSEMIDE
  21. GUAIFENESIN [Concomitant]
     Active Substance: GUAIFENESIN
  22. IBUPROFEN [Concomitant]
     Active Substance: IBUPROFEN
  23. INSULIN LISPRO [Concomitant]
     Active Substance: INSULIN LISPRO
  24. IOPAMIDOL [Concomitant]
     Active Substance: IOPAMIDOL
  25. LORATADINE [Concomitant]
     Active Substance: LORATADINE
  26. LORAZEPAM [Concomitant]
     Active Substance: LORAZEPAM
  27. MENTHOL [Concomitant]
     Active Substance: MENTHOL
  28. MOMETASONE FUROATE [Concomitant]
     Active Substance: MOMETASONE FUROATE
  29. MORPHINE [Concomitant]
     Active Substance: MORPHINE
  30. PREDNISONE [Concomitant]
     Active Substance: PREDNISONE
  31. WARFARIN [Concomitant]
     Active Substance: WARFARIN
  32. BISACODYL [Concomitant]
     Active Substance: BISACODYL
  33. POLYETHYLENE GLYCOL 3350 [Concomitant]
     Active Substance: POLYETHYLENE GLYCOL 3350
  34. NYSTATIN [Concomitant]
     Active Substance: NYSTATIN
  35. ACETAMINOPHEN [Concomitant]
     Active Substance: ACETAMINOPHEN
  36. ACETAZOLAMIDE [Concomitant]
     Active Substance: ACETAZOLAMIDE
  37. ALBUMIN HUMAN [Concomitant]
     Active Substance: ALBUMIN HUMAN
  38. IPRATROPIUM BROMIDE [Concomitant]
     Active Substance: IPRATROPIUM BROMIDE
  39. PHENOL [Concomitant]
     Active Substance: PHENOL
  40. POTASSIUM CHLORIDE [Concomitant]
     Active Substance: POTASSIUM CHLORIDE
  41. POTASSIUM PHOSPHATE, DIBASIC [Concomitant]
     Active Substance: POTASSIUM PHOSPHATE, DIBASIC
  42. VANCOMYCIN [Concomitant]
     Active Substance: VANCOMYCIN

REACTIONS (2)
  - Acute respiratory failure [Recovering/Resolving]
  - Pulmonary embolism [Not Recovered/Not Resolved]

NARRATIVE: CASE EVENT DATE: 20210319
